FAERS Safety Report 8424510-5 (Version None)
Quarter: 2012Q2

REPORT INFORMATION
  Report Type: 
  Country: None (occurrence: None)
  Receive Date: 20120611
  Receipt Date: 20120529
  Transmission Date: 20120825
  Serious: Yes (Other)
  Sender: FDA-Public Use
  Company Number: GB-AMGEN-GBRSP2012034232

PATIENT
  Age: 63 Year
  Sex: Female

DRUGS (2)
  1. ENBREL [Suspect]
     Indication: RHEUMATOID ARTHRITIS
     Dosage: UNK, WEEKLY
  2. ANTIBIOTICS [Suspect]

REACTIONS (5)
  - VISION BLURRED [None]
  - GINGIVAL INFECTION [None]
  - EYE DISORDER [None]
  - METAMORPHOPSIA [None]
  - UVEITIS [None]
